FAERS Safety Report 21308614 (Version 2)
Quarter: 2022Q3

REPORT INFORMATION
  Report Type: Other
  Country: FR (occurrence: FR)
  Receive Date: 20220908
  Receipt Date: 20220920
  Transmission Date: 20221026
  Serious: Yes (Life-Threatening)
  Sender: FDA-Public Use
  Company Number: FR-ROCHE-2180778

PATIENT
  Age: 38 Year
  Sex: Male

DRUGS (29)
  1. RITUXIMAB [Suspect]
     Active Substance: RITUXIMAB
     Indication: Central nervous system lymphoma
     Dosage: FROM 4 COURSES OF R-DIAM
     Route: 042
  2. METHOTREXATE [Suspect]
     Active Substance: METHOTREXATE
     Indication: Central nervous system lymphoma
     Dosage: 2 CYCLES OF COPADEM INDUCTION
     Route: 065
  3. METHOTREXATE [Suspect]
     Active Substance: METHOTREXATE
     Dosage: 2 CYCLES OF CYM CONSOLIDATION
     Route: 065
  4. METHOTREXATE [Suspect]
     Active Substance: METHOTREXATE
     Dosage: 3 CYCLES OF DIAM AT 1ST RELAPSE
     Route: 065
  5. METHOTREXATE [Suspect]
     Active Substance: METHOTREXATE
     Dosage: 3 CYCLES OF DIAM AT 1ST RELAPSE
     Route: 037
  6. METHOTREXATE [Suspect]
     Active Substance: METHOTREXATE
     Dosage: FROM 4 COURSES OF R-DIAM AT 2ND RELAPSE
     Route: 065
  7. METHOTREXATE [Suspect]
     Active Substance: METHOTREXATE
     Dosage: FROM 4 COURSES OF R-DIAM AT 2ND RELAPSE
     Route: 037
  8. CYCLOPHOSPHAMIDE [Suspect]
     Active Substance: CYCLOPHOSPHAMIDE
     Indication: Central nervous system lymphoma
     Dosage: DEBULKING CHEMOTHERAPY
     Route: 065
  9. CYCLOPHOSPHAMIDE [Suspect]
     Active Substance: CYCLOPHOSPHAMIDE
     Indication: Prophylaxis against transplant rejection
     Dosage: 2 CYCLES OF COPADEM INDUCTION
     Route: 065
  10. CYCLOPHOSPHAMIDE [Suspect]
     Active Substance: CYCLOPHOSPHAMIDE
     Indication: Autologous haematopoietic stem cell transplant
     Dosage: CONDITIONING THERAPY FOR SECOND ASCT
     Route: 065
  11. DEXAMETHASONE [Suspect]
     Active Substance: DEXAMETHASONE
     Indication: Prophylaxis against transplant rejection
     Dosage: 3 CYCLES OF DIAM AT 1ST RELAPSE
     Route: 065
  12. DEXAMETHASONE [Suspect]
     Active Substance: DEXAMETHASONE
     Indication: Central nervous system lymphoma
     Dosage: CONDITIONED BY BEAM-ARAC HIGH DOSE BEFORE ASCT
     Route: 065
  13. DEXAMETHASONE [Suspect]
     Active Substance: DEXAMETHASONE
     Dosage: FROM 4 COURSES OF R-DIAM AT 2ND RELAPSE
     Route: 065
  14. THIOTEPA [Suspect]
     Active Substance: THIOTEPA
     Indication: Prophylaxis against transplant rejection
     Dosage: CONDITIONING THERAPY FOR SECOND ASCT
     Route: 065
  15. THIOTEPA [Suspect]
     Active Substance: THIOTEPA
     Indication: Autologous haematopoietic stem cell transplant
  16. RACECADOTRIL [Suspect]
     Active Substance: RACECADOTRIL
     Indication: Product used for unknown indication
     Route: 065
  17. CEFTAZIDIME [Suspect]
     Active Substance: CEFTAZIDIME
     Indication: Product used for unknown indication
     Route: 065
  18. CYTARABINE [Suspect]
     Active Substance: CYTARABINE
     Indication: Central nervous system lymphoma
     Dosage: 2 CYCLES OF COPADEM INDUCTION
     Route: 037
  19. CYTARABINE [Suspect]
     Active Substance: CYTARABINE
     Indication: Prophylaxis against transplant rejection
     Dosage: 2 CYCLES OF CYM CONSOLIDATION
     Route: 065
  20. CYTARABINE [Suspect]
     Active Substance: CYTARABINE
     Dosage: 2 CYCLES OF CYM CONSOLIDATION
     Route: 037
  21. CYTARABINE [Suspect]
     Active Substance: CYTARABINE
     Dosage: 3 CYCLES OF DIAM AT 1ST RELAPSE
     Route: 065
  22. CYTARABINE [Suspect]
     Active Substance: CYTARABINE
     Dosage: CONDITIONED BY BEAM-ARAC HIGH DOSE BEFORE ASCT, 2000 MG/M2 INFUSED OVER 1 HOUR, OVERALL 3900 MG
     Route: 042
  23. CYTARABINE [Suspect]
     Active Substance: CYTARABINE
     Dosage: FROM 4 COURSES OF R-DIAM AT 2ND RELAPSE
     Route: 065
  24. IFOSFAMIDE [Suspect]
     Active Substance: IFOSFAMIDE
     Indication: Central nervous system lymphoma
     Dosage: 3 CYCLES OF DIAM AT 1ST RELAPSE
     Route: 065
  25. IFOSFAMIDE [Suspect]
     Active Substance: IFOSFAMIDE
     Dosage: FROM 4 COURSES OF R-DIAM AT 2ND RELAPSE
     Route: 065
  26. BUSULFAN [Suspect]
     Active Substance: BUSULFAN
     Indication: Prophylaxis against transplant rejection
     Dosage: 0.8 MG/KG X 4, CONDITIONING THERAPY FOR SECOND ASCT
     Route: 042
  27. BUSULFAN [Suspect]
     Active Substance: BUSULFAN
     Indication: Autologous haematopoietic stem cell transplant
  28. LENOGRASTIM [Suspect]
     Active Substance: LENOGRASTIM
     Indication: Product used for unknown indication
     Dosage: 34 MUI/D, STARTING AT D12 AFTER THE 2ND CYCLE OF R-DIAM
     Route: 065
  29. FILGRASTIM [Concomitant]
     Active Substance: FILGRASTIM

REACTIONS (3)
  - Pseudomonal sepsis [Recovering/Resolving]
  - Mucosal inflammation [Recovering/Resolving]
  - Enterobacter sepsis [Recovering/Resolving]
